FAERS Safety Report 9518340 (Version 1)
Quarter: 2013Q1

REPORT INFORMATION
  Report Type: Spontaneous
  Country: US (occurrence: None)
  Receive Date: 20130305
  Receipt Date: 20130305
  Transmission Date: 20140127
  Serious: Yes (Other)
  Sender: FDA-Public Use
  Company Number: 163-21880-12071294

PATIENT
  Age: 68 Year
  Sex: Female
  Weight: 65.77 kg

DRUGS (4)
  1. REVLIMID (LENALIDOMIDE) (CAPSULES) [Suspect]
     Indication: PLASMA CELL MYELOMA
     Dosage: 10 MG, 1 IN 1 D, PO
     Route: 048
     Dates: start: 201107
  2. ASPIRIN (ACETYLSALICYLIC ACID) (UNKNOWN) (ACETYLSALICYLIC ACID) [Concomitant]
  3. CALCIUM + D (OS-CAL) (UNKNOWN) [Concomitant]
  4. VITAMIN D3 (COLECALCIFEROL) (UNKNOWN) [Concomitant]

REACTIONS (4)
  - Visual acuity reduced [None]
  - Cataract [None]
  - Ocular hyperaemia [None]
  - Eye pain [None]
